FAERS Safety Report 24890574 (Version 1)
Quarter: 2025Q1

REPORT INFORMATION
  Report Type: Spontaneous
  Country: GB (occurrence: GB)
  Receive Date: 20250127
  Receipt Date: 20250127
  Transmission Date: 20250409
  Serious: Yes (Other)
  Sender: ALEXION PHARMACEUTICALS
  Company Number: GB-MHRA-TPP32084829C7436201YC1737643027285

PATIENT
  Age: 50 Year
  Weight: 118 kg

DRUGS (12)
  1. DAPAGLIFLOZIN [Suspect]
     Active Substance: DAPAGLIFLOZIN
     Indication: Diabetes mellitus
     Dosage: ONE TABLET TO BE TAKEN ONCE A DAY FOR DIABETES
     Route: 065
  2. VENTOLIN [Concomitant]
     Active Substance: ALBUTEROL SULFATE
     Indication: Ill-defined disorder
     Route: 065
  3. DESOGESTREL [Concomitant]
     Active Substance: DESOGESTREL
     Indication: Ill-defined disorder
     Route: 065
  4. LITHIUM [Concomitant]
     Active Substance: LITHIUM
     Indication: Depression
     Route: 065
  5. BECLOMETHASONE DIPROPIONATE [Concomitant]
     Active Substance: BECLOMETHASONE DIPROPIONATE
     Indication: Ill-defined disorder
     Route: 065
  6. ALBUTEROL [Concomitant]
     Active Substance: ALBUTEROL
     Indication: Ill-defined disorder
     Route: 065
  7. VENLAFAXINE HYDROCHLORIDE [Concomitant]
     Active Substance: VENLAFAXINE HYDROCHLORIDE
     Indication: Ill-defined disorder
     Route: 065
  8. GLICLAZIDE [Concomitant]
     Active Substance: GLICLAZIDE
     Indication: Ill-defined disorder
     Route: 065
  9. UNSPECIFIED INGREDIENT [Concomitant]
     Active Substance: UNSPECIFIED INGREDIENT
     Indication: Ill-defined disorder
     Route: 065
  10. UNSPECIFIED INGREDIENT [Concomitant]
     Active Substance: UNSPECIFIED INGREDIENT
     Indication: Ill-defined disorder
     Route: 065
  11. UNSPECIFIED INGREDIENT [Concomitant]
     Active Substance: UNSPECIFIED INGREDIENT
     Indication: Ill-defined disorder
     Route: 065
  12. METFORMIN [Concomitant]
     Active Substance: METFORMIN HYDROCHLORIDE
     Indication: Ill-defined disorder
     Route: 065

REACTIONS (1)
  - Fatigue [Unknown]
